FAERS Safety Report 14079358 (Version 3)
Quarter: 2018Q4

REPORT INFORMATION
  Report Type: Report from Study
  Country: JP (occurrence: JP)
  Receive Date: 20171012
  Receipt Date: 20181016
  Transmission Date: 20190204
  Serious: Yes (Hospitalization, Other)
  Sender: FDA-Public Use
  Company Number: JP-SA-2016SA115638

PATIENT
  Age: 71 Year
  Sex: Female

DRUGS (36)
  1. SEVELAMER HYDROCHLORIDE. [Suspect]
     Active Substance: SEVELAMER HYDROCHLORIDE
     Dosage: UNK UNK,UNK
     Route: 048
     Dates: start: 20160105
  2. DARBEPOETIN ALFA [Suspect]
     Active Substance: DARBEPOETIN ALFA
     Dosage: UNK UNK,UNK
     Route: 042
     Dates: start: 20150917, end: 20151117
  3. DARBEPOETIN ALFA [Suspect]
     Active Substance: DARBEPOETIN ALFA
     Dosage: UNK
     Route: 042
     Dates: start: 20171211, end: 20180115
  4. SEVELAMER HYDROCHLORIDE. [Suspect]
     Active Substance: SEVELAMER HYDROCHLORIDE
     Dosage: UNK UNK,UNK
     Route: 048
     Dates: start: 20150602, end: 20160104
  5. DARBEPOETIN ALFA [Suspect]
     Active Substance: DARBEPOETIN ALFA
     Dosage: UNK UNK,UNK
     Route: 042
     Dates: start: 20150813, end: 20150915
  6. DARBEPOETIN ALFA [Suspect]
     Active Substance: DARBEPOETIN ALFA
     Dosage: UNK UNK,UNK
     Route: 042
     Dates: start: 20160317, end: 20160324
  7. DARBEPOETIN ALFA [Suspect]
     Active Substance: DARBEPOETIN ALFA
     Dosage: UNK
     Route: 042
     Dates: start: 20170912, end: 20170925
  8. DARBEPOETIN ALFA [Suspect]
     Active Substance: DARBEPOETIN ALFA
     Dosage: UNK
     Route: 042
     Dates: start: 20180311, end: 20180402
  9. DARBEPOETIN ALFA [Suspect]
     Active Substance: DARBEPOETIN ALFA
     Dosage: UNK UNK,UNK
     Route: 042
     Dates: start: 20161129, end: 20170130
  10. DARBEPOETIN ALFA [Suspect]
     Active Substance: DARBEPOETIN ALFA
     Dosage: UNK
     Route: 042
     Dates: start: 20170620, end: 20170703
  11. DARBEPOETIN ALFA [Suspect]
     Active Substance: DARBEPOETIN ALFA
     Dosage: UNK
     Route: 042
     Dates: start: 20170704, end: 20170724
  12. DARBEPOETIN ALFA [Suspect]
     Active Substance: DARBEPOETIN ALFA
     Dosage: UNK
     Route: 042
     Dates: start: 20170725, end: 20170911
  13. DARBEPOETIN ALFA [Suspect]
     Active Substance: DARBEPOETIN ALFA
     Dosage: UNK
     Route: 042
     Dates: start: 20180403, end: 20180415
  14. DARBEPOETIN ALFA [Suspect]
     Active Substance: DARBEPOETIN ALFA
     Dosage: UNK UNK,UNK
     Route: 042
     Dates: start: 20160121, end: 20160218
  15. DARBEPOETIN ALFA [Suspect]
     Active Substance: DARBEPOETIN ALFA
     Dosage: UNK UNK,UNK
     Route: 042
     Dates: start: 20160331, end: 20160411
  16. DARBEPOETIN ALFA [Suspect]
     Active Substance: DARBEPOETIN ALFA
     Dosage: UNK
     Route: 042
     Dates: start: 20170314, end: 20170424
  17. DARBEPOETIN ALFA [Suspect]
     Active Substance: DARBEPOETIN ALFA
     Dosage: UNK
     Route: 042
     Dates: start: 20170425, end: 20170605
  18. DARBEPOETIN ALFA [Suspect]
     Active Substance: DARBEPOETIN ALFA
     Dosage: UNK UNK,UNK
     Route: 042
     Dates: start: 20151119, end: 20151231
  19. DARBEPOETIN ALFA [Suspect]
     Active Substance: DARBEPOETIN ALFA
     Dosage: UNK UNK,UNK
     Route: 042
     Dates: start: 20160524, end: 20160606
  20. DARBEPOETIN ALFA [Suspect]
     Active Substance: DARBEPOETIN ALFA
     Dosage: UNK UNK,UNK
     Route: 042
     Dates: start: 20160912, end: 20161114
  21. DARBEPOETIN ALFA [Suspect]
     Active Substance: DARBEPOETIN ALFA
     Dosage: UNK UNK,UNK
     Route: 042
     Dates: start: 20161115, end: 20161128
  22. DARBEPOETIN ALFA [Suspect]
     Active Substance: DARBEPOETIN ALFA
     Dosage: UNK
     Route: 042
     Dates: start: 20180508
  23. DARBEPOETIN ALFA [Suspect]
     Active Substance: DARBEPOETIN ALFA
     Dosage: UNK UNK,UNK
     Route: 042
     Dates: start: 20150602, end: 20150811
  24. DARBEPOETIN ALFA [Suspect]
     Active Substance: DARBEPOETIN ALFA
     Dosage: UNK UNK,UNK
     Route: 042
     Dates: start: 20160105, end: 20160114
  25. DARBEPOETIN ALFA [Suspect]
     Active Substance: DARBEPOETIN ALFA
     Dosage: UNK UNK,UNK
     Route: 042
     Dates: start: 20160607, end: 20160620
  26. DARBEPOETIN ALFA [Suspect]
     Active Substance: DARBEPOETIN ALFA
     Dosage: UNK UNK,UNK
     Route: 042
     Dates: start: 20170131, end: 20170313
  27. DARBEPOETIN ALFA [Suspect]
     Active Substance: DARBEPOETIN ALFA
     Dosage: UNK
     Route: 042
     Dates: start: 20171114, end: 20171126
  28. DARBEPOETIN ALFA [Suspect]
     Active Substance: DARBEPOETIN ALFA
     Dosage: UNK UNK,UNK
     Route: 042
     Dates: start: 20160412, end: 20160425
  29. DARBEPOETIN ALFA [Suspect]
     Active Substance: DARBEPOETIN ALFA
     Dosage: UNK UNK,UNK
     Route: 042
     Dates: start: 20160503, end: 20160523
  30. DARBEPOETIN ALFA [Suspect]
     Active Substance: DARBEPOETIN ALFA
     Dosage: UNK UNK,UNK
     Route: 042
     Dates: start: 20160621, end: 20160808
  31. DARBEPOETIN ALFA [Suspect]
     Active Substance: DARBEPOETIN ALFA
     Dosage: UNK
     Route: 042
     Dates: start: 20170606, end: 20170619
  32. DARBEPOETIN ALFA [Suspect]
     Active Substance: DARBEPOETIN ALFA
     Dosage: UNK UNK,UNK
     Route: 042
     Dates: start: 20160225, end: 20160310
  33. DARBEPOETIN ALFA [Suspect]
     Active Substance: DARBEPOETIN ALFA
     Dosage: UNK UNK,UNK
     Route: 042
     Dates: start: 20160830, end: 20160911
  34. DARBEPOETIN ALFA [Suspect]
     Active Substance: DARBEPOETIN ALFA
     Dosage: UNK
     Route: 042
     Dates: start: 20170926, end: 20171113
  35. DARBEPOETIN ALFA [Suspect]
     Active Substance: DARBEPOETIN ALFA
     Dosage: UNK
     Route: 042
     Dates: start: 20171127, end: 20171210
  36. DARBEPOETIN ALFA [Suspect]
     Active Substance: DARBEPOETIN ALFA
     Dosage: UNK
     Route: 042
     Dates: start: 20180416, end: 20180507

REACTIONS (4)
  - Wound infection [Unknown]
  - Intermittent claudication [Recovering/Resolving]
  - Pain [Recovering/Resolving]
  - Hospitalisation [Recovering/Resolving]

NARRATIVE: CASE EVENT DATE: 20160127
